FAERS Safety Report 23943466 (Version 1)
Quarter: 2024Q2

REPORT INFORMATION
  Report Type: Report from Study
  Country: CA (occurrence: CA)
  Receive Date: 20240605
  Receipt Date: 20240605
  Transmission Date: 20240716
  Serious: Yes (Hospitalization, Other)
  Sender: FDA-Public Use
  Company Number: CA-ABBVIE-5683431

PATIENT
  Age: 79 Year
  Sex: Male

DRUGS (1)
  1. LUPRON DEPOT [Suspect]
     Active Substance: LEUPROLIDE ACETATE
     Indication: Prostate cancer
     Route: 030
     Dates: start: 20220802

REACTIONS (8)
  - Loss of consciousness [Unknown]
  - Hospitalisation [Unknown]
  - Peripheral swelling [Unknown]
  - Pulmonary embolism [Recovering/Resolving]
  - Weight decreased [Unknown]
  - Asthenia [Unknown]
  - Viral infection [Unknown]
  - Pyrexia [Unknown]

NARRATIVE: CASE EVENT DATE: 20240101
